FAERS Safety Report 13770293 (Version 1)
Quarter: 2017Q3

REPORT INFORMATION
  Report Type: Spontaneous
  Country: US (occurrence: US)
  Receive Date: 20170719
  Receipt Date: 20170719
  Transmission Date: 20171127
  Serious: Yes (Other)
  Sender: FDA-Public Use
  Company Number: None

PATIENT
  Age: 6 Month
  Sex: Female
  Weight: 67.5 kg

DRUGS (1)
  1. CLONAZEPAM. [Suspect]
     Active Substance: CLONAZEPAM
     Indication: SCHIZOAFFECTIVE DISORDER

REACTIONS (6)
  - Fear [None]
  - Euphoric mood [None]
  - Product taste abnormal [None]
  - Product substitution issue [None]
  - Disorientation [None]
  - Product solubility abnormal [None]

NARRATIVE: CASE EVENT DATE: 20170719
